FAERS Safety Report 6657681-1 (Version None)
Quarter: 2010Q1

REPORT INFORMATION
  Report Type: 
  Country: None (occurrence: None)
  Receive Date: 20100326
  Receipt Date: 20100319
  Transmission Date: 20100710
  Serious: Yes (Other)
  Sender: FDA-Public Use
  Company Number: 100060

PATIENT
  Age: 68 Year
  Sex: Male

DRUGS (2)
  1. LOW VOLUME PEG PREPARATION [Suspect]
     Indication: COLONOSCOPY
  2. BISACODYL [Suspect]
     Indication: COLONOSCOPY

REACTIONS (4)
  - COLITIS ISCHAEMIC [None]
  - RECTAL HAEMORRHAGE [None]
  - SUBCUTANEOUS HAEMATOMA [None]
  - ULCER [None]
